FAERS Safety Report 12632276 (Version 2)
Quarter: 2016Q3

REPORT INFORMATION
  Report Type: Spontaneous
  Country: US (occurrence: US)
  Receive Date: 20160808
  Receipt Date: 20160808
  Transmission Date: 20161109
  Serious: No
  Sender: FDA-Public Use
  Company Number: US-BEH-2016062288

PATIENT
  Age: 45 Year
  Sex: Male
  Weight: 125 kg

DRUGS (28)
  1. DIPHENHYDRAMINE. [Concomitant]
     Active Substance: DIPHENHYDRAMINE
  2. ALLEGRA [Concomitant]
     Active Substance: FEXOFENADINE HYDROCHLORIDE
  3. FIBER [Concomitant]
     Active Substance: PSYLLIUM HUSK
  4. HIZENTRA [Suspect]
     Active Substance: HUMAN IMMUNOGLOBULIN G
     Indication: HYPOGAMMAGLOBULINAEMIA
     Route: 058
     Dates: start: 20140320
  5. ACETAMINOPHEN. [Concomitant]
     Active Substance: ACETAMINOPHEN
  6. TRICOR [Concomitant]
     Active Substance: FENOFIBRATE
  7. CYMBALTA [Concomitant]
     Active Substance: DULOXETINE HYDROCHLORIDE
  8. STOOL SOFTNER [Concomitant]
     Active Substance: DOCUSATE SODIUM
  9. NEURONTIN [Concomitant]
     Active Substance: GABAPENTIN
  10. ZOLOFT [Concomitant]
     Active Substance: SERTRALINE HYDROCHLORIDE
  11. BACLOFEN. [Concomitant]
     Active Substance: BACLOFEN
  12. TESTOSTERONE. [Concomitant]
     Active Substance: TESTOSTERONE
  13. MULTIVITAMIN [Concomitant]
     Active Substance: VITAMINS
  14. NYSTATIN. [Concomitant]
     Active Substance: NYSTATIN
  15. CLOBESTASOL [Concomitant]
  16. LISINOPRIL. [Concomitant]
     Active Substance: LISINOPRIL
  17. VITAMIN D [Concomitant]
     Active Substance: CHOLECALCIFEROL
  18. CITRACAL [Concomitant]
     Active Substance: CALCIUM CITRATE
  19. NORTRIPTYLINE [Concomitant]
     Active Substance: NORTRIPTYLINE
  20. LANTUS [Concomitant]
     Active Substance: INSULIN GLARGINE
  21. FLONASE [Concomitant]
     Active Substance: FLUTICASONE PROPIONATE
  22. NEXIUM [Concomitant]
     Active Substance: ESOMEPRAZOLE MAGNESIUM
  23. HYDROCODONE [Concomitant]
     Active Substance: HYDROCODONE
  24. VEGETABLE LAXATIVE [Concomitant]
     Active Substance: SENNOSIDES A AND B
  25. PRAVASTATIN. [Concomitant]
     Active Substance: PRAVASTATIN
  26. LIDOCAINE. [Concomitant]
     Active Substance: LIDOCAINE
  27. EPIPEN [Concomitant]
     Active Substance: EPINEPHRINE
  28. ZOFRAN [Concomitant]
     Active Substance: ONDANSETRON HYDROCHLORIDE

REACTIONS (2)
  - Bronchitis [Unknown]
  - Upper respiratory tract infection [Unknown]

NARRATIVE: CASE EVENT DATE: 20160217
